FAERS Safety Report 9192534 (Version 1)
Quarter: 2013Q1

REPORT INFORMATION
  Report Type: Spontaneous
  Country: US (occurrence: US)
  Receive Date: 20130327
  Receipt Date: 20130327
  Transmission Date: 20140127
  Serious: Yes (Other)
  Sender: FDA-Public Use
  Company Number: US-PFIZER INC-2013096371

PATIENT
  Age: 47 Year
  Sex: Female

DRUGS (1)
  1. NEURONTIN [Suspect]
     Indication: DIABETIC NEUROPATHY
     Dosage: UNK(100 MG IN MORNING AND 200 MG AT NIGHT), 2X/DAY
     Dates: start: 2012, end: 20130321

REACTIONS (4)
  - Suicidal behaviour [Not Recovered/Not Resolved]
  - Dizziness [Not Recovered/Not Resolved]
  - Somnolence [Not Recovered/Not Resolved]
  - Insomnia [Not Recovered/Not Resolved]
